FAERS Safety Report 6898312-5 (Version None)
Quarter: 2010Q3

REPORT INFORMATION
  Report Type: 
  Country: None (occurrence: None)
  Receive Date: 20100802
  Receipt Date: 20071006
  Transmission Date: 20110219
  Serious: No
  Sender: FDA-Public Use
  Company Number: US-PFIZER INC-2007083772

PATIENT
  Sex: Female

DRUGS (2)
  1. LYRICA [Suspect]
     Indication: TRIGEMINAL NEURALGIA
  2. METHADONE HCL [Suspect]
     Indication: PAIN

REACTIONS (2)
  - CONFUSIONAL STATE [None]
  - DISTURBANCE IN ATTENTION [None]
